FAERS Safety Report 16508719 (Version 1)
Quarter: 2019Q3

REPORT INFORMATION
  Report Type: Spontaneous
  Country: FR (occurrence: FR)
  Receive Date: 20190701
  Receipt Date: 20190701
  Transmission Date: 20191004
  Serious: Yes (Hospitalization)
  Sender: FDA-Public Use
  Company Number: FR-MYLANLABS-2019M1059792

PATIENT
  Age: 71 Year
  Sex: Female
  Weight: 48 kg

DRUGS (2)
  1. CAPECITABINE. [Suspect]
     Active Substance: CAPECITABINE
     Indication: RECTAL NEOPLASM
     Dosage: 2000 MILLIGRAM, QD
     Route: 048
     Dates: start: 20171124, end: 201807
  2. MITOMYCINE [Suspect]
     Active Substance: MITOMYCIN
     Indication: RECTAL NEOPLASM
     Dosage: 13.2 MILLIGRAM
     Route: 041
     Dates: start: 20171124, end: 201805

REACTIONS (1)
  - Thrombotic microangiopathy [Not Recovered/Not Resolved]

NARRATIVE: CASE EVENT DATE: 20181114
